FAERS Safety Report 9147074 (Version 1)
Quarter: 2013Q1

REPORT INFORMATION
  Report Type: Spontaneous
  Country: BR (occurrence: BR)
  Receive Date: 20130307
  Receipt Date: 20130307
  Transmission Date: 20140127
  Serious: Yes (Other)
  Sender: FDA-Public Use
  Company Number: PHHY2013BR022140

PATIENT
  Age: 69 Year
  Sex: Female

DRUGS (4)
  1. FORASEQ [Suspect]
     Indication: CHRONIC OBSTRUCTIVE PULMONARY DISEASE
     Dosage: 2 DF, DAILY
  2. BROMAZEPAM [Concomitant]
     Indication: MENTAL DISORDER
     Dosage: 1 DF, BID
  3. ATROVENT [Concomitant]
     Indication: ASTHMA
     Dosage: 10 DRP, BID (10 DROPS IN 10 ML OF SALINE SOLUTION, BID)
  4. ATROVENT [Concomitant]
     Indication: EMPHYSEMA

REACTIONS (10)
  - Cholelithiasis [Recovered/Resolved]
  - Gallbladder perforation [Recovered/Resolved]
  - Incisional hernia [Recovered/Resolved]
  - Gastritis [Not Recovered/Not Resolved]
  - Osteoporosis [Not Recovered/Not Resolved]
  - Urinary tract infection [Recovered/Resolved]
  - Renal injury [Not Recovered/Not Resolved]
  - Hypertension [Not Recovered/Not Resolved]
  - Incorrect route of drug administration [Recovered/Resolved]
  - Nervousness [Unknown]
